FAERS Safety Report 20381749 (Version 2)
Quarter: 2022Q1

REPORT INFORMATION
  Report Type: Spontaneous
  Country: TW (occurrence: TW)
  Receive Date: 20220127
  Receipt Date: 20220201
  Transmission Date: 20220424
  Serious: Yes (Hospitalization)
  Sender: FDA-Public Use
  Company Number: TW-SA-SAC20220124000960

PATIENT
  Age: 2 Year
  Sex: Male

DRUGS (1)
  1. MYOZYME [Suspect]
     Active Substance: ALGLUCOSIDASE ALFA
     Dosage: 9 VIALS, QOW
     Route: 042
     Dates: start: 20220105, end: 20220105

REACTIONS (2)
  - Upper respiratory tract infection [Unknown]
  - Hypokinesia [Unknown]

NARRATIVE: CASE EVENT DATE: 20220118
